FAERS Safety Report 12812559 (Version 1)
Quarter: 2016Q4

REPORT INFORMATION
  Report Type: Spontaneous
  Country: FR (occurrence: FR)
  Receive Date: 20161005
  Receipt Date: 20161005
  Transmission Date: 20170207
  Serious: Yes (Hospitalization)
  Sender: FDA-Public Use
  Company Number: FR-SA-2016SA181141

PATIENT
  Age: 76 Year
  Sex: Male

DRUGS (4)
  1. LOVENOX [Suspect]
     Active Substance: ENOXAPARIN SODIUM
     Indication: PROPHYLAXIS
     Route: 058
     Dates: start: 20160831, end: 20160906
  2. AMOXICILLIN. [Suspect]
     Active Substance: AMOXICILLIN
     Route: 042
     Dates: start: 20160831, end: 20160831
  3. CLAVULANIC ACID [Suspect]
     Active Substance: CLAVULANIC ACID
     Route: 042
     Dates: start: 20160831, end: 20160831
  4. BACTRIM [Suspect]
     Active Substance: SULFAMETHOXAZOLE\TRIMETHOPRIM
     Indication: PROSTATITIS
     Route: 048
     Dates: start: 20160809, end: 20160827

REACTIONS (1)
  - Drug reaction with eosinophilia and systemic symptoms [Not Recovered/Not Resolved]

NARRATIVE: CASE EVENT DATE: 20160903
